FAERS Safety Report 18485418 (Version 3)
Quarter: 2020Q4

REPORT INFORMATION
  Report Type: Report from Study
  Country: US (occurrence: US)
  Receive Date: 20201110
  Receipt Date: 20201124
  Transmission Date: 20210114
  Serious: Yes (Other)
  Sender: FDA-Public Use
  Company Number: US-SA-2020SA315376

PATIENT

DRUGS (3)
  1. AGALSIDASE BETA [Suspect]
     Active Substance: AGALSIDASE BETA
     Dosage: 60 MG, QOW
     Route: 042
     Dates: start: 20180425
  2. KEPPRA [Concomitant]
     Active Substance: LEVETIRACETAM
  3. AGALSIDASE BETA [Suspect]
     Active Substance: AGALSIDASE BETA
     Indication: FABRY^S DISEASE
     Dosage: 60 MG, QOW
     Route: 042
     Dates: start: 20180417

REACTIONS (3)
  - Weight decreased [Unknown]
  - Seizure [Unknown]
  - Blood sodium decreased [Unknown]

NARRATIVE: CASE EVENT DATE: 20201106
